FAERS Safety Report 5383025-1 (Version None)
Quarter: 2007Q3

REPORT INFORMATION
  Report Type: 
  Country: None (occurrence: None)
  Receive Date: 20070710
  Receipt Date: 20070702
  Transmission Date: 20080115
  Serious: Yes (Other)
  Sender: FDA-Public Use
  Company Number: TW-ROCHE-505155

PATIENT
  Age: 65 Year
  Sex: Female
  Weight: 60 kg

DRUGS (6)
  1. RIVOTRIL [Suspect]
     Dosage: 1 DOSE FORM TAKEN AT NIGHT.
     Route: 048
     Dates: start: 20070317, end: 20070318
  2. RIVOTRIL [Suspect]
     Route: 048
     Dates: start: 20070330
  3. MADOPAR [Suspect]
     Indication: PARKINSON'S DISEASE
     Route: 048
     Dates: start: 20070317, end: 20070318
  4. MADOPAR [Suspect]
     Route: 048
     Dates: start: 20070330
  5. ARTANE [Suspect]
     Indication: PARKINSON'S DISEASE
     Route: 048
     Dates: start: 20070317, end: 20070318
  6. ARTANE [Suspect]
     Route: 048
     Dates: start: 20070330

REACTIONS (5)
  - DISORIENTATION [None]
  - HALLUCINATION [None]
  - OVERDOSE [None]
  - SOMNOLENCE [None]
  - TREMOR [None]
